FAERS Safety Report 17636693 (Version 1)
Quarter: 2020Q2

REPORT INFORMATION
  Report Type: Spontaneous
  Country: FR (occurrence: FR)
  Receive Date: 20200407
  Receipt Date: 20200407
  Transmission Date: 20200713
  Serious: Yes (Other)
  Sender: FDA-Public Use
  Company Number: FR-TEVA-2020-FR-1218635

PATIENT
  Age: 71 Year
  Sex: Male
  Weight: 80 kg

DRUGS (6)
  1. FUROSEMIDE. [Concomitant]
     Active Substance: FUROSEMIDE
  2. LOPINAVIR RITONAVIR MYLAN 200 MG/50 MG, COMPRIM? PELLICUL? [Suspect]
     Active Substance: LOPINAVIR\RITONAVIR
     Indication: CORONAVIRUS INFECTION
     Dosage: 4 DF
     Route: 048
     Dates: start: 20200314, end: 20200317
  3. CEFOTAXIME BASE [Concomitant]
     Active Substance: CEFOTAXIME SODIUM
  4. EBILFUMIN 75 MG, G?LULE [Suspect]
     Active Substance: OSELTAMIVIR PHOSPHATE
     Indication: INFLUENZA
     Dosage: 2 DF
     Route: 048
     Dates: start: 20200313, end: 20200317
  5. PARACETAMOL [Concomitant]
     Active Substance: ACETAMINOPHEN
  6. ROVAMYCINE [Concomitant]
     Active Substance: SPIRAMYCIN

REACTIONS (1)
  - Hepatocellular injury [Recovering/Resolving]

NARRATIVE: CASE EVENT DATE: 20200317
